FAERS Safety Report 7291276-4 (Version None)
Quarter: 2011Q1

REPORT INFORMATION
  Report Type: 
  Country: None (occurrence: None)
  Receive Date: 20110202
  Receipt Date: 20110120
  Transmission Date: 20110831
  Serious: Yes (Other)
  Sender: FDA-Public Use
  Company Number: 2010000528

PATIENT
  Age: 44 Year
  Sex: Male
  Weight: 95 kg

DRUGS (19)
  1. NOVAMIN (PROCHLORPERAZINE) [Concomitant]
  2. ADONA (CARBAZOCHROME SODIUM SULFONATE) [Concomitant]
  3. PRIMPERAN TAB [Concomitant]
  4. GASTER (FAMOTIDINE) [Concomitant]
  5. BIOFERMIN (BIOFERMIN) [Concomitant]
  6. ISOSORBIDE (ISOSORBIDE) [Concomitant]
  7. ERLOTINIB HYDROCHLORIDE [Suspect]
     Indication: LUNG ADENOCARCINOMA
     Dosage: (150 MG, QD), ORAL; (100 MG, QD), ORAL
     Route: 048
     Dates: start: 20080711, end: 20080902
  8. ERLOTINIB HYDROCHLORIDE [Suspect]
     Indication: LUNG ADENOCARCINOMA
     Dosage: (150 MG, QD), ORAL; (100 MG, QD), ORAL
     Route: 048
     Dates: start: 20080522, end: 20080902
  9. SOLITA-T1 [Concomitant]
  10. CODEINE PHOSPHATE (CODEINE PHOSPHATE) [Concomitant]
  11. ACETAMINOPHEN [Concomitant]
  12. RABEPRAZOLE SODIUM [Concomitant]
  13. TRANSAMIN (TRANEXAMIC ACID) [Concomitant]
  14. GASMOTIN (MOSAPRIDE CITRATE) [Concomitant]
  15. IRSOGLADINE MALEATE (IRSOGLADINE MALEATE) [Concomitant]
  16. PREDNISOLONE [Concomitant]
  17. GLYCEROL 2.6% [Concomitant]
  18. LOXOPROFEN (LOXOPROFEN) [Concomitant]
  19. RINDERON (BETAMETHASONE) [Concomitant]

REACTIONS (1)
  - MENINGITIS [None]
